FAERS Safety Report 9631202 (Version 1)
Quarter: 2013Q4

REPORT INFORMATION
  Report Type: Spontaneous
  Country: CA (occurrence: None)
  Receive Date: 20131016
  Receipt Date: 20131016
  Transmission Date: 20140711
  Serious: Yes (Other)
  Sender: FDA-Public Use
  Company Number: CA-A00003

PATIENT
  Sex: 0

DRUGS (1)
  1. FOMEPIZOLE [Suspect]
     Indication: ALCOHOL USE

REACTIONS (1)
  - Hypoglycaemia [None]
